FAERS Safety Report 6338022-6 (Version None)
Quarter: 2009Q3

REPORT INFORMATION
  Report Type: 
  Country: None (occurrence: None)
  Receive Date: 20090902
  Receipt Date: 20090824
  Transmission Date: 20100115
  Serious: Yes (Hospitalization)
  Sender: FDA-Public Use
  Company Number: FR-PFIZER INC-2009249123

PATIENT
  Age: 72 Year

DRUGS (8)
  1. AMLODIPINE [Suspect]
     Indication: HYPERTENSION
     Dosage: 5 MG, 1X/DAY
     Route: 048
  2. TAHOR [Suspect]
     Indication: DYSLIPIDAEMIA
     Dosage: 20 MG, 1X/DAY
     Route: 048
     Dates: start: 20090625, end: 20090708
  3. ATACAND [Suspect]
     Indication: HYPERTENSION
     Dosage: 8 MG, 1X/DAY
     Route: 048
     Dates: start: 20090625
  4. INEXIUM [Suspect]
     Dosage: 40 MG, 1X/DAY
     Route: 048
     Dates: start: 20090625, end: 20090703
  5. DAFALGAN [Suspect]
     Indication: PAIN
     Dosage: 1 G, 4X/DAY
     Route: 048
     Dates: start: 20090524, end: 20090703
  6. CALCIPARINE ^DIFREX^ [Concomitant]
  7. TOPALGIC [Concomitant]
  8. DROLEPTAN [Concomitant]

REACTIONS (1)
  - TOXIC SKIN ERUPTION [None]
